FAERS Safety Report 7501194-1 (Version None)
Quarter: 2011Q2

REPORT INFORMATION
  Report Type: 
  Country: None (occurrence: None)
  Receive Date: 20110524
  Receipt Date: 20101026
  Transmission Date: 20111010
  Serious: Yes (Other)
  Sender: FDA-Public Use
  Company Number: PHHY2010US69407

PATIENT
  Sex: Female
  Weight: 55.9 kg

DRUGS (17)
  1. GLEEVEC [Suspect]
     Dosage: 600 MG, DAILY
     Route: 048
     Dates: start: 20010501
  2. GLEEVEC [Suspect]
     Dosage: 300 MG, BID
     Route: 048
     Dates: start: 20070810
  3. MULTIPLE VITAMINS [Concomitant]
  4. GLEEVEC [Suspect]
     Dosage: 700 MG, DAILY
     Route: 048
     Dates: start: 20090117, end: 20090922
  5. GLEEVEC [Suspect]
     Dosage: 600 MG, DAILY
     Route: 048
     Dates: start: 20090922
  6. MIRALAX [Concomitant]
  7. VITAMIN D [Concomitant]
     Dosage: 400 U, BID
  8. PREMARIN [Concomitant]
     Dosage: 0.9 MG, QD
  9. CLARITIN [Concomitant]
     Dosage: 10 MG, QD
  10. CITRACAL + D [Concomitant]
     Dosage: 315-200MG-UNIT 1 TAB BID
     Route: 048
  11. GLEEVEC [Suspect]
     Dosage: 800 MG, DAILY
     Route: 048
     Dates: start: 20021107, end: 20090116
  12. LEVOTHYROXINE SODIUM [Concomitant]
     Dosage: 75MCG, ONCE A DAY ON M/W/F AND 1.5TAB ON OTHER DAYS
  13. GLEEVEC [Suspect]
     Indication: CHRONIC MYELOID LEUKAEMIA
     Dosage: 400 MG,DAILY
     Route: 048
     Dates: start: 20010501
  14. ASCORBIC ACID [Concomitant]
     Dosage: 500 MG, QD
     Route: 048
  15. FLONASE [Concomitant]
     Dosage: 50MCG/ACTUATION, AS NEEDED
  16. ASPIRIN [Concomitant]
     Dosage: 81 MG, QD
  17. ARANESP [Concomitant]
     Dosage: 150 UG, QW2
     Route: 058

REACTIONS (9)
  - PALPITATIONS [None]
  - COUGH [None]
  - GASTRITIS [None]
  - ANAEMIA [None]
  - HIATUS HERNIA [None]
  - NEOPLASM MALIGNANT [None]
  - COLON CANCER STAGE 0 [None]
  - OESOPHAGEAL STENOSIS [None]
  - BLOOD CREATININE INCREASED [None]
